FAERS Safety Report 6606452-0 (Version None)
Quarter: 2010Q1

REPORT INFORMATION
  Report Type: 
  Country: None (occurrence: None)
  Receive Date: 20100226
  Receipt Date: 20100215
  Transmission Date: 20100710
  Serious: Yes (Other)
  Sender: FDA-Public Use
  Company Number: PHHY2009MX59271

PATIENT
  Age: 68 Year
  Sex: Male

DRUGS (1)
  1. CO-DIOVAN [Suspect]
     Indication: HYPERTENSION
     Dosage: 1 TABLET (160/25 MG) PER DAY
     Dates: start: 20030801, end: 20090925

REACTIONS (3)
  - COUGH [None]
  - EMPHYSEMA [None]
  - INCREASED UPPER AIRWAY SECRETION [None]
